FAERS Safety Report 4349132-7 (Version None)
Quarter: 2004Q2

REPORT INFORMATION
  Report Type: 
  Country: None (occurrence: None)
  Receive Date: 20040427
  Receipt Date: 20040427
  Transmission Date: 20050107
  Serious: Yes (Hospitalization)
  Sender: FDA-Public Use
  Company Number: None

PATIENT
  Age: 75 Year
  Sex: Male
  Weight: 94 kg

DRUGS (5)
  1. CELECOXIB 200 MG [Suspect]
     Indication: BACK PAIN
     Dosage: 200 MG ONCE ORAL
     Route: 048
     Dates: start: 20040413, end: 20040413
  2. LISINOPRIL [Suspect]
     Dosage: 40 MG DAILY ORAL
     Route: 048
  3. MULTIVITAMIN [Concomitant]
  4. VITAMIN E [Concomitant]
  5. ASPIRIN [Concomitant]

REACTIONS (6)
  - DIZZINESS [None]
  - DYSPHAGIA [None]
  - HYPOTENSION [None]
  - PALATAL OEDEMA [None]
  - SWELLING FACE [None]
  - SWOLLEN TONGUE [None]
